FAERS Safety Report 10469738 (Version 2)
Quarter: 2015Q3

REPORT INFORMATION
  Report Type: Spontaneous
  Country: US (occurrence: None)
  Receive Date: 20140905
  Receipt Date: 20150902
  Transmission Date: 20151125
  Serious: Yes (Hospitalization)
  Sender: FDA-Public Use
  Company Number: A-NJ2014-100196

PATIENT
  Age: 60 Year
  Sex: Female

DRUGS (3)
  1. XARELTO [Concomitant]
     Active Substance: RIVAROXABAN
  2. VELETRI [Suspect]
     Active Substance: EPOPROSTENOL
     Indication: PULMONARY HYPERTENSION
     Dosage: 20 NG/KG, PER MIN, INTRAVENOUS
     Route: 042
     Dates: start: 20130328
  3. POTASSIUM (POTASSIUM) [Suspect]
     Active Substance: POTASSIUM
     Indication: PRODUCT USED FOR UNKNOWN INDICATION

REACTIONS (15)
  - Oedema [None]
  - Vomiting [None]
  - Pain [None]
  - Ascites [None]
  - Oedema peripheral [None]
  - Paracentesis [None]
  - Localised oedema [None]
  - Dyspnoea [None]
  - Abdominal pain upper [None]
  - Abdominal distension [None]
  - Gait disturbance [None]
  - Fall [None]
  - Nausea [None]
  - Fluid overload [None]
  - Headache [None]

NARRATIVE: CASE EVENT DATE: 20140603
